FAERS Safety Report 6906104-3 (Version None)
Quarter: 2010Q3

REPORT INFORMATION
  Report Type: 
  Country: None (occurrence: None)
  Receive Date: 20100804
  Receipt Date: 20100728
  Transmission Date: 20110219
  Serious: Yes (Other)
  Sender: FDA-Public Use
  Company Number: BR-SANOFI-AVENTIS-2010SA044851

PATIENT
  Age: 45 Year
  Sex: Female
  Weight: 53 kg

DRUGS (13)
  1. LANTUS [Suspect]
     Route: 058
     Dates: start: 20040101, end: 20091101
  2. LANTUS [Suspect]
     Route: 058
     Dates: start: 20091101
  3. HUMALOG [Concomitant]
     Route: 058
  4. FOLIC ACID [Concomitant]
     Indication: CHEMOTHERAPY
     Route: 048
     Dates: start: 20080108
  5. PURAN T4 [Concomitant]
     Indication: HYPOTHYROIDISM
     Route: 048
     Dates: start: 20061107
  6. CITALOPRAM [Concomitant]
     Indication: BIPOLAR DISORDER
     Route: 048
     Dates: start: 20080108
  7. OLCADIL [Concomitant]
     Indication: BIPOLAR DISORDER
     Route: 048
     Dates: start: 20100430
  8. TRIVASTAL [Concomitant]
     Route: 048
  9. ASPIRIN [Concomitant]
     Route: 048
     Dates: start: 20060608
  10. VITAMIN B COMPLEX CAP [Concomitant]
     Route: 048
     Dates: start: 20070601
  11. METFORMIN HYDROCHLORIDE [Concomitant]
     Route: 048
  12. CALTRATE [Concomitant]
     Route: 048
  13. GLUCOSAMINE [Concomitant]
     Route: 048
     Dates: start: 20090114

REACTIONS (7)
  - ANKLE FRACTURE [None]
  - BREAST CANCER [None]
  - CEREBROVASCULAR ACCIDENT [None]
  - CONVULSION [None]
  - HYPOGLYCAEMIC UNCONSCIOUSNESS [None]
  - TREMOR [None]
  - URINARY INCONTINENCE [None]
